FAERS Safety Report 9155570 (Version 1)
Quarter: 2013Q1

REPORT INFORMATION
  Report Type: Spontaneous
  Country: BR (occurrence: BR)
  Receive Date: 20130311
  Receipt Date: 20130311
  Transmission Date: 20140127
  Serious: Yes (Other)
  Sender: FDA-Public Use
  Company Number: BR-GLAXOSMITHKLINE-A1015351A

PATIENT
  Age: 77 Year
  Sex: Male
  Weight: 80 kg

DRUGS (5)
  1. COMBODART [Suspect]
     Indication: PROSTATIC DISORDER
     Dosage: 1CAP AT NIGHT
     Route: 065
     Dates: start: 20130222
  2. LEVOTHYROXINE [Concomitant]
  3. LOSARTAN [Concomitant]
  4. HYDROCHLOROTHIAZIDE [Concomitant]
  5. ALLOPURINOL [Concomitant]

REACTIONS (1)
  - Haemorrhage [Recovered/Resolved]
